FAERS Safety Report 9692623 (Version 1)
Quarter: 2013Q4

REPORT INFORMATION
  Report Type: Spontaneous
  Country: US (occurrence: None)
  Receive Date: 20131115
  Receipt Date: 20131115
  Transmission Date: 20140711
  Serious: No
  Sender: FDA-Public Use
  Company Number: None

PATIENT
  Age: 80 Year
  Sex: Female

DRUGS (8)
  1. EYLEA [Suspect]
     Indication: AGE-RELATED MACULAR DEGENERATION
     Dosage: 2MG/0.05ML, PRN/AS NEEDED, OPHTHALMIC
     Dates: start: 20131112, end: 20131112
  2. DIOVAN [Concomitant]
  3. METOPROLOL ER [Concomitant]
  4. POTASSIUM [Concomitant]
  5. LASIX [Concomitant]
  6. LAMOTIL [Concomitant]
  7. IMODIUM [Concomitant]
  8. COLESTIRUMINE PRN [Concomitant]

REACTIONS (1)
  - Anterior chamber inflammation [None]
